FAERS Safety Report 6600466-2 (Version None)
Quarter: 2010Q1

REPORT INFORMATION
  Report Type: 
  Country: None (occurrence: None)
  Receive Date: 20100223
  Receipt Date: 20100223
  Transmission Date: 20100710
  Serious: Yes (Hospitalization)
  Sender: FDA-Public Use
  Company Number: None

PATIENT
  Age: 70 Year
  Sex: Male
  Weight: 113.4 kg

DRUGS (1)
  1. IODIXANOL [Suspect]
     Indication: ANGIOGRAM
     Dates: start: 20090218, end: 20090218

REACTIONS (1)
  - RENAL TUBULAR NECROSIS [None]
